FAERS Safety Report 7806199-9 (Version None)
Quarter: 2011Q4

REPORT INFORMATION
  Report Type: 
  Country: None (occurrence: None)
  Receive Date: 20111011
  Receipt Date: 20110928
  Transmission Date: 20120403
  Serious: Yes (Other)
  Sender: FDA-Public Use
  Company Number: DE-ELI_LILLY_AND_COMPANY-DE201109003446

PATIENT
  Age: 69 Year
  Sex: Male
  Weight: 74 kg

DRUGS (4)
  1. ALIMTA [Suspect]
     Indication: PLEURAL MESOTHELIOMA
     Dosage: 940 MG, UNK
     Route: 042
     Dates: start: 20110503
  2. CISPLATIN [Concomitant]
     Indication: PLEURAL MESOTHELIOMA
  3. DEXAMETHASONE [Concomitant]
  4. GRANISETRON [Concomitant]

REACTIONS (1)
  - RHEUMATOID ARTHRITIS [None]
